FAERS Safety Report 5023906-1 (Version None)
Quarter: 2006Q2

REPORT INFORMATION
  Report Type: 
  Country: None (occurrence: None)
  Receive Date: 20060426
  Receipt Date: 20060213
  Transmission Date: 20061013
  Serious: Yes (Other)
  Sender: FDA-Public Use
  Company Number: 2006022693

PATIENT
  Age: 75 Year
  Sex: Female
  Weight: 47.1741 kg

DRUGS (3)
  1. LYRICA [Suspect]
     Indication: PAIN
     Dosage: 150 MG (50 MG, 3 IN 1 D),
     Dates: start: 20060125
  2. ZOCOR [Concomitant]
  3. ACTONEL [Concomitant]

REACTIONS (3)
  - CONSTIPATION [None]
  - MALAISE [None]
  - WEIGHT INCREASED [None]
